FAERS Safety Report 7857880-7 (Version None)
Quarter: 2011Q4

REPORT INFORMATION
  Report Type: 
  Country: None (occurrence: None)
  Receive Date: 20111027
  Receipt Date: 20110222
  Transmission Date: 20120403
  Serious: No
  Sender: FDA-Public Use
  Company Number: US-BAYER-2011-017720

PATIENT
  Sex: Male
  Weight: 81 kg

DRUGS (5)
  1. ALEVE (CAPLET) [Suspect]
     Indication: BACK PAIN
     Dosage: DAILY, BID
     Route: 048
     Dates: start: 20110208, end: 20110219
  2. TRIAMTERENE AND HYDROCHLOROTHIAZID [Concomitant]
     Dosage: UNK
     Route: 048
  3. ASPIRIN [Concomitant]
     Dosage: DAILY, ONCE
     Route: 048
  4. TIMOLOL MALEATE [Concomitant]
     Dosage: UNK
     Route: 047
  5. CALCIUM CARBONATE [Concomitant]
     Dosage: UNK
     Route: 048

REACTIONS (1)
  - DIZZINESS POSTURAL [None]
